FAERS Safety Report 7353361-8 (Version None)
Quarter: 2011Q1

REPORT INFORMATION
  Report Type: 
  Country: None (occurrence: None)
  Receive Date: 20110315
  Receipt Date: 20110309
  Transmission Date: 20110831
  Serious: Yes (Hospitalization, Other)
  Sender: FDA-Public Use
  Company Number: US-PFIZER INC-2011052831

PATIENT
  Sex: Male
  Weight: 98.866 kg

DRUGS (7)
  1. TYLENOL W/ CODEINE [Suspect]
     Dosage: UNK
     Route: 048
  2. TRICOR [Concomitant]
     Indication: BLOOD CHOLESTEROL INCREASED
     Dosage: UNK
     Route: 048
  3. OXYCODONE HCL [Suspect]
     Dosage: UNK
     Route: 048
  4. TESTOSTERONE [Concomitant]
     Dosage: 2 CC , MONTHLY
  5. WARFARIN [Concomitant]
     Indication: ANTICOAGULANT THERAPY
     Dosage: UNK
     Route: 048
  6. METHADONE [Concomitant]
     Indication: PAIN
     Dosage: UNK
     Route: 048
  7. ADVIL LIQUI-GELS [Suspect]
     Indication: HEADACHE
     Dosage: UNK
     Route: 048

REACTIONS (5)
  - REACTION TO DRUG EXCIPIENTS [None]
  - SKIN PAPILLOMA [None]
  - WEIGHT FLUCTUATION [None]
  - BLOOD GLUCOSE INCREASED [None]
  - PRURITUS GENERALISED [None]
